FAERS Safety Report 10223033 (Version 1)
Quarter: 2014Q2

REPORT INFORMATION
  Report Type: Spontaneous
  Country: US (occurrence: None)
  Receive Date: 20140605
  Receipt Date: 20140605
  Transmission Date: 20141212
  Serious: Yes (Hospitalization)
  Sender: FDA-Public Use
  Company Number: UNT-2014-001177

PATIENT
  Age: 48 Year
  Sex: Female

DRUGS (1)
  1. REMODULIN (TREPROSTINIL SODIUM) INJECTION, 10 MG/ML [Suspect]
     Indication: PULMONARY ARTERIAL HYPERTENSION
     Route: 042
     Dates: start: 20130619

REACTIONS (2)
  - Fluid overload [None]
  - Dyspnoea [None]
